FAERS Safety Report 25940573 (Version 1)
Quarter: 2025Q4

REPORT INFORMATION
  Report Type: Spontaneous
  Country: KR (occurrence: KR)
  Receive Date: 20251020
  Receipt Date: 20251020
  Transmission Date: 20260117
  Serious: Yes (Hospitalization)
  Sender: MYLAN
  Company Number: KR-MYLANLABS-2025M1087139

PATIENT
  Age: 84 Year
  Sex: Female

DRUGS (4)
  1. LYRICA [Suspect]
     Active Substance: PREGABALIN
     Indication: Gastroenteritis
     Dosage: 75 MILLIGRAM, QD (ONCE DAILY)
     Dates: start: 20221009, end: 20221010
  2. LYRICA [Suspect]
     Active Substance: PREGABALIN
     Dosage: 75 MILLIGRAM, QD (ONCE DAILY)
     Route: 065
     Dates: start: 20221009, end: 20221010
  3. LYRICA [Suspect]
     Active Substance: PREGABALIN
     Dosage: 75 MILLIGRAM, QD (ONCE DAILY)
     Route: 065
     Dates: start: 20221009, end: 20221010
  4. LYRICA [Suspect]
     Active Substance: PREGABALIN
     Dosage: 75 MILLIGRAM, QD (ONCE DAILY)
     Dates: start: 20221009, end: 20221010

REACTIONS (4)
  - Depressed level of consciousness [Recovered/Resolved]
  - Dizziness [Recovered/Resolved]
  - Somnolence [Recovered/Resolved]
  - Off label use [Unknown]

NARRATIVE: CASE EVENT DATE: 20221009
